FAERS Safety Report 9122990 (Version 1)
Quarter: 2013Q1

REPORT INFORMATION
  Report Type: Spontaneous
  Country: US (occurrence: None)
  Receive Date: 20130130
  Receipt Date: 20130130
  Transmission Date: 20140127
  Serious: Yes (Death)
  Sender: FDA-Public Use
  Company Number: B0859158A

PATIENT
  Age: 43 Year
  Sex: Male

DRUGS (6)
  1. PHENOBARBITONE [Suspect]
     Dosage: UNK  /  UNK  /  ORAL?UNK
     Route: 048
  2. LAMOTRIGINE [Suspect]
     Dosage: UNK  /  UNK  /  ORAL?UNK
     Route: 048
  3. DEXTROMETHORPHAN [Suspect]
     Dosage: UNK  /  UNK  /  ORAL?UNK
     Route: 048
  4. FENTANYL [Suspect]
     Dosage: UNK  /  UNK  /  ORAL?UNK
     Route: 048
  5. ALPRAZOLAM (FORMULATION UNKNOWN) (ALPRAZOLAM) [Suspect]
     Dosage: UNK  /  UNK  /  ORAL?UNK
     Route: 048
  6. CYCLOBENZAPRINE HC1 (FORMULATION UNKNOWN) (CYCLOBENZAPRINE HC1) [Suspect]
     Dosage: UNK  /  UNK  /  ORAL?UNK
     Route: 048

REACTIONS (2)
  - Intentional drug misuse [None]
  - Cardio-respiratory arrest [None]
